FAERS Safety Report 16338924 (Version 11)
Quarter: 2025Q2

REPORT INFORMATION
  Report Type: Report from Study
  Country: CA (occurrence: CA)
  Receive Date: 20190521
  Receipt Date: 20250623
  Transmission Date: 20250717
  Serious: Yes (Hospitalization, Disabling, Other)
  Sender: GLAXOSMITHKLINE
  Company Number: CA-GLAXOSMITHKLINE-CA2019GSK057955

PATIENT
  Age: 62 Year
  Sex: Male

DRUGS (56)
  1. FLUTICASONE PROPIONATE\SALMETEROL XINAFOATE [Suspect]
     Active Substance: FLUTICASONE PROPIONATE\SALMETEROL XINAFOATE
     Indication: Eosinophilic granulomatosis with polyangiitis
     Dosage: 1 PUFF(S), BID 500 MCG
  2. FLUTICASONE PROPIONATE\SALMETEROL XINAFOATE [Suspect]
     Active Substance: FLUTICASONE PROPIONATE\SALMETEROL XINAFOATE
     Dosage: 1 DF, BID
  3. FLUTICASONE PROPIONATE\SALMETEROL XINAFOATE [Suspect]
     Active Substance: FLUTICASONE PROPIONATE\SALMETEROL XINAFOATE
     Dosage: 100 MG, QD
  4. FLUTICASONE PROPIONATE\SALMETEROL XINAFOATE [Suspect]
     Active Substance: FLUTICASONE PROPIONATE\SALMETEROL XINAFOATE
     Dosage: 5 MG, BID
  5. FLUTICASONE PROPIONATE\SALMETEROL XINAFOATE [Suspect]
     Active Substance: FLUTICASONE PROPIONATE\SALMETEROL XINAFOATE
  6. FLUTICASONE PROPIONATE\SALMETEROL XINAFOATE [Suspect]
     Active Substance: FLUTICASONE PROPIONATE\SALMETEROL XINAFOATE
     Dosage: 10 MG, QD
  7. VENTOLIN [Suspect]
     Active Substance: ALBUTEROL SULFATE
     Indication: Eosinophilic granulomatosis with polyangiitis
  8. FLUTICASONE PROPIONATE [Suspect]
     Active Substance: FLUTICASONE PROPIONATE
     Indication: Eosinophilic granulomatosis with polyangiitis
     Dosage: 5 MG, BID
  9. FLUTICASONE PROPIONATE\SALMETEROL XINAFOATE [Suspect]
     Active Substance: FLUTICASONE PROPIONATE\SALMETEROL XINAFOATE
     Indication: Product used for unknown indication
  10. ALBUTEROL [Suspect]
     Active Substance: ALBUTEROL
     Indication: Eosinophilic granulomatosis with polyangiitis
     Route: 065
  11. SALMETEROL XINAFOATE [Suspect]
     Active Substance: SALMETEROL XINAFOATE
     Indication: Eosinophilic granulomatosis with polyangiitis
     Dosage: 1 DF, BID
  12. CALCIUM [Suspect]
     Active Substance: CALCIUM
     Indication: Product used for unknown indication
  13. VITAMIN D [Suspect]
     Active Substance: VITAMIN D NOS
     Indication: Product used for unknown indication
  14. FOLATE SODIUM [Suspect]
     Active Substance: FOLATE SODIUM
     Indication: Product used for unknown indication
     Dosage: 5 MG, QD (6 DAYS PER WEEK)
  15. RAMIPRIL [Suspect]
     Active Substance: RAMIPRIL
     Indication: Product used for unknown indication
     Dosage: 10 MG, QD
  16. OMNARIS [Suspect]
     Active Substance: CICLESONIDE
     Indication: Product used for unknown indication
  17. OMNARIS [Suspect]
     Active Substance: CICLESONIDE
  18. SODIUM BICARBONATE\SODIUM CHLORIDE [Suspect]
     Active Substance: SODIUM BICARBONATE\SODIUM CHLORIDE
     Indication: Product used for unknown indication
  19. METHOTREXATE [Suspect]
     Active Substance: METHOTREXATE
     Indication: Product used for unknown indication
     Dosage: 25 MG, WE
     Dates: start: 200902
  20. METHOTREXATE [Suspect]
     Active Substance: METHOTREXATE
     Dosage: 15 MG, WE
     Dates: start: 2010
  21. METHOTREXATE [Suspect]
     Active Substance: METHOTREXATE
     Dosage: 7.5 MG, WE
     Dates: start: 201101, end: 201105
  22. METHOTREXATE [Suspect]
     Active Substance: METHOTREXATE
  23. METHOTREXATE [Suspect]
     Active Substance: METHOTREXATE
     Dosage: 25 MG, WE
     Dates: start: 201206
  24. METHOTREXATE [Suspect]
     Active Substance: METHOTREXATE
  25. METHOTREXATE [Suspect]
     Active Substance: METHOTREXATE
  26. METHOTREXATE [Suspect]
     Active Substance: METHOTREXATE
  27. PREDNISONE [Suspect]
     Active Substance: PREDNISONE
     Indication: Product used for unknown indication
     Dosage: 5 MG, QD
  28. PREDNISONE [Suspect]
     Active Substance: PREDNISONE
     Dosage: 10 MG, QD
     Dates: start: 201211
  29. PREDNISONE [Suspect]
     Active Substance: PREDNISONE
     Dosage: 7.5 MG, QD
     Dates: start: 201409
  30. PREDNISONE [Suspect]
     Active Substance: PREDNISONE
     Dosage: 2 MG, QD
  31. PREDNISONE [Suspect]
     Active Substance: PREDNISONE
  32. PREDNISONE [Suspect]
     Active Substance: PREDNISONE
  33. PREDNISONE [Suspect]
     Active Substance: PREDNISONE
     Dosage: 7.5 MG, QD
  34. PREDNISONE [Suspect]
     Active Substance: PREDNISONE
     Dosage: 5 MG, QD
  35. ALENDRONATE SODIUM [Suspect]
     Active Substance: ALENDRONATE SODIUM
     Indication: Product used for unknown indication
     Dosage: 70 MG, WE
  36. ALENDRONATE SODIUM [Suspect]
     Active Substance: ALENDRONATE SODIUM
     Dosage: 50 MG, QD
  37. ALENDRONATE SODIUM [Suspect]
     Active Substance: ALENDRONATE SODIUM
  38. CYCLOPHOSPHAMIDE [Suspect]
     Active Substance: CYCLOPHOSPHAMIDE
     Indication: Product used for unknown indication
  39. CYCLOPHOSPHAMIDE [Suspect]
     Active Substance: CYCLOPHOSPHAMIDE
     Dosage: 175 MG, QD
     Dates: start: 20080815, end: 200901
  40. CYCLOPHOSPHAMIDE [Suspect]
     Active Substance: CYCLOPHOSPHAMIDE
  41. CYCLOPHOSPHAMIDE [Suspect]
     Active Substance: CYCLOPHOSPHAMIDE
  42. CYCLOPHOSPHAMIDE [Suspect]
     Active Substance: CYCLOPHOSPHAMIDE
     Dosage: 175 MG, QD
  43. BICALUTAMIDE [Suspect]
     Active Substance: BICALUTAMIDE
     Indication: Product used for unknown indication
     Dosage: 50 MG, QD
  44. GOSERELIN [Suspect]
     Active Substance: GOSERELIN
     Indication: Product used for unknown indication
  45. GOSERELIN [Suspect]
     Active Substance: GOSERELIN
  46. SULFAMETHOXAZOLE\TRIMETHOPRIM [Suspect]
     Active Substance: SULFAMETHOXAZOLE\TRIMETHOPRIM
     Indication: Product used for unknown indication
  47. SEPTRA DS [Suspect]
     Active Substance: SULFAMETHOXAZOLE\TRIMETHOPRIM
     Indication: Product used for unknown indication
  48. ALBUTEROL [Suspect]
     Active Substance: ALBUTEROL
     Indication: Eosinophilic granulomatosis with polyangiitis
  49. AZELASTINE HYDROCHLORIDE AND FLUTICASONE PROPIONATE [Suspect]
     Active Substance: AZELASTINE HYDROCHLORIDE\FLUTICASONE PROPIONATE
     Indication: Eosinophilic granulomatosis with polyangiitis
  50. BROMHEXINE HYDROCHLORIDE [Suspect]
     Active Substance: BROMHEXINE HYDROCHLORIDE
     Indication: Product used for unknown indication
  51. CALCIUM CARBONATE [Suspect]
     Active Substance: CALCIUM CARBONATE
     Indication: Eosinophilic granulomatosis with polyangiitis
  52. ERGOCALCIFEROL [Suspect]
     Active Substance: ERGOCALCIFEROL
     Indication: Product used for unknown indication
     Route: 065
  53. FOSAMAX [Suspect]
     Active Substance: ALENDRONATE SODIUM
     Indication: Product used for unknown indication
  54. GOSERELIN [Suspect]
     Active Substance: GOSERELIN
     Indication: Product used for unknown indication
  55. EDETATE CALCIUM DISODIUM [Suspect]
     Active Substance: EDETATE CALCIUM DISODIUM
     Indication: Product used for unknown indication
  56. CICLESONIDE [Suspect]
     Active Substance: CICLESONIDE
     Indication: Product used for unknown indication
     Dosage: 2 DF, QD

REACTIONS (35)
  - Pneumonia [Unknown]
  - Prostate cancer [Unknown]
  - Eosinophilic granulomatosis with polyangiitis [Unknown]
  - Eosinophilic myocarditis [Unknown]
  - Ventricular hypokinesia [Unknown]
  - Eosinophil count decreased [Unknown]
  - Cardiac septal defect [Unknown]
  - Atopy [Unknown]
  - Respiratory tract infection [Unknown]
  - Asthma [Unknown]
  - Obstructive airways disorder [Unknown]
  - Airway remodelling [Unknown]
  - Eosinophilic pneumonia [Unknown]
  - Renal disorder [Unknown]
  - Haematuria [Unknown]
  - Central nervous system mass [Unknown]
  - Confusional state [Unknown]
  - Memory impairment [Unknown]
  - Viral infection [Unknown]
  - Eosinophil count increased [Unknown]
  - Respiratory symptom [Unknown]
  - Wall motion score index abnormal [Unknown]
  - Microangiopathy [Unknown]
  - Chronic sinusitis [Unknown]
  - Nasal polyps [Unknown]
  - Obesity [Unknown]
  - Hypertension [Unknown]
  - Blood immunoglobulin E increased [Unknown]
  - Condition aggravated [Unknown]
  - Lacrimation increased [Unknown]
  - Productive cough [Unknown]
  - Nodule [Unknown]
  - Lymphopenia [Unknown]
  - Haemorrhage [Unknown]
  - Product use in unapproved indication [Unknown]

NARRATIVE: CASE EVENT DATE: 20090101
